FAERS Safety Report 4655116-1 (Version None)
Quarter: 2005Q2

REPORT INFORMATION
  Report Type: 
  Country: None (occurrence: None)
  Receive Date: 20050506
  Receipt Date: 20050429
  Transmission Date: 20051028
  Serious: Yes (Other)
  Sender: FDA-Public Use
  Company Number: US-JNJFOC-20050500302

PATIENT
  Sex: Male
  Weight: 60.33 kg

DRUGS (4)
  1. DURAGESIC-100 [Suspect]
     Route: 062
  2. ASACOL [Concomitant]
     Indication: CROHN'S DISEASE
     Route: 049
  3. KLONOPIN [Concomitant]
     Route: 049
  4. DEMEROL [Concomitant]
     Indication: PAIN
     Route: 030

REACTIONS (1)
  - CONVULSION [None]
